FAERS Safety Report 8466188-0 (Version None)
Quarter: 2012Q2

REPORT INFORMATION
  Report Type: 
  Country: None (occurrence: None)
  Receive Date: 20120626
  Receipt Date: 20120614
  Transmission Date: 20120825
  Serious: Yes (Other)
  Sender: FDA-Public Use
  Company Number: BR-ELI_LILLY_AND_COMPANY-BR201203003080

PATIENT
  Sex: Female
  Weight: 59 kg

DRUGS (4)
  1. LANTUS [Concomitant]
     Dosage: UNK, UNKNOWN
     Route: 065
  2. LAMOTRIGINE [Concomitant]
     Dosage: UNK, UNKNOWN
     Route: 065
  3. NOVORAPID [Concomitant]
     Dosage: UNK, UNKNOWN
     Route: 065
  4. FORTEO [Suspect]
     Indication: BONE FORMATION INCREASED
     Dosage: UNK, QD
     Route: 058
     Dates: start: 20111201

REACTIONS (4)
  - INTENTIONAL DRUG MISUSE [None]
  - PAIN [None]
  - FRACTURE [None]
  - OVERDOSE [None]
